FAERS Safety Report 6135933-1 (Version None)
Quarter: 2009Q1

REPORT INFORMATION
  Report Type: 
  Country: None (occurrence: None)
  Receive Date: 20090329
  Receipt Date: 20080429
  Transmission Date: 20090719
  Serious: No
  Sender: FDA-Public Use
  Company Number: US-BAUSCH-2008BL001905

PATIENT
  Age: 80 Year
  Sex: Female

DRUGS (4)
  1. LEVOBUNOLOL HYDROCHLORIDE [Suspect]
     Indication: GLAUCOMA
     Route: 047
     Dates: start: 20070401, end: 20080512
  2. LEVOBUNOLOL HYDROCHLORIDE [Suspect]
     Route: 047
     Dates: start: 20070401, end: 20080512
  3. XALATAN /SWE/ [Concomitant]
     Indication: GLAUCOMA
     Route: 047
  4. SYNTHROID [Concomitant]
     Indication: THYROID DISORDER
     Route: 048

REACTIONS (4)
  - DIZZINESS [None]
  - HEADACHE [None]
  - KERATOCONJUNCTIVITIS SICCA [None]
  - MEDICATION RESIDUE [None]
